FAERS Safety Report 7570420-5 (Version None)
Quarter: 2011Q2

REPORT INFORMATION
  Report Type: 
  Country: None (occurrence: None)
  Receive Date: 20110624
  Receipt Date: 20110318
  Transmission Date: 20111010
  Serious: No
  Sender: FDA-Public Use
  Company Number: US-ALLERGAN-0917907US

PATIENT
  Sex: Female

DRUGS (2)
  1. LATISSE [Suspect]
     Indication: HYPOTRICHOSIS
     Dosage: UNK
     Dates: start: 20090101
  2. DYSPORT [Suspect]
     Indication: SKIN WRINKLING
     Dosage: 300 UNITS, UNKNOWN
     Route: 030
     Dates: start: 20090101

REACTIONS (2)
  - EYE PRURITUS [None]
  - OCULAR HYPERAEMIA [None]
